FAERS Safety Report 6200289-2 (Version None)
Quarter: 2009Q2

REPORT INFORMATION
  Report Type: 
  Country: None (occurrence: None)
  Receive Date: 20090522
  Receipt Date: 20090520
  Transmission Date: 20091009
  Serious: Yes (Death)
  Sender: FDA-Public Use
  Company Number: US-JNJFOC-20090504970

PATIENT
  Sex: Male
  Weight: 92.7 kg

DRUGS (2)
  1. PROPULSID [Suspect]
     Indication: GASTROINTESTINAL MOTILITY DISORDER
     Route: 048
  2. PROPULSID [Suspect]
     Indication: GASTROOESOPHAGEAL REFLUX DISEASE
     Route: 048

REACTIONS (1)
  - DEATH [None]
